FAERS Safety Report 5150950-6 (Version None)
Quarter: 2006Q4

REPORT INFORMATION
  Report Type: 
  Country: None (occurrence: None)
  Receive Date: 20061115
  Receipt Date: 20061102
  Transmission Date: 20070319
  Serious: Yes (Hospitalization)
  Sender: FDA-Public Use
  Company Number: DE-PURDUE-DEU_2006_0002605

PATIENT
  Age: 73 Year
  Sex: Female
  Weight: 67 kg

DRUGS (4)
  1. OXYGESIC [Suspect]
     Indication: PAIN
     Dosage: 10 MG, TID
     Route: 048
  2. ACTONEL [Concomitant]
  3. ACETAMINOPHEN [Concomitant]
  4. METAMIZOLE [Concomitant]

REACTIONS (1)
  - HYPOGLYCAEMIA [None]
